FAERS Safety Report 8716003 (Version 2)
Quarter: 2012Q4

REPORT INFORMATION
  Report Type: 
  Country: DE (occurrence: DE)
  Receive Date: 20120809
  Receipt Date: 20121113
  Transmission Date: 20130627
  Serious: Yes (Hospitalization)
  Sender: FDA-Public Use
  Company Number: DE-B.I. PHARMACEUTICALS,INC./RIDGEFIELD-2012-DE-01787DE

PATIENT
  Age: 74 Year
  Sex: Female
  Weight: 56 kg

DRUGS (13)
  1. PRADAXA [Suspect]
     Indication: ATRIAL FIBRILLATION
     Dosage: 220 mg
     Route: 048
     Dates: start: 20120626, end: 20120826
  2. BISOPROLOL [Concomitant]
     Dosage: 20 mg
  3. DIGIMERCK [Concomitant]
     Dosage: 0.7 NR
  4. APPROVEL [Concomitant]
     Dosage: 150 mg
  5. XIPAMID [Concomitant]
     Dosage: 40 mg
  6. SIMVASTATIN [Concomitant]
     Dosage: 40 mg
  7. GARBAPENTIN [Concomitant]
     Dosage: 300 mg
  8. INSULIN [Concomitant]
     Indication: DIABETES MELLITUS
  9. XELEVIA [Concomitant]
     Dosage: 100 mg
  10. PANTOPRAZOL [Concomitant]
     Dosage: 40 mg
  11. HUMALOG [Concomitant]
     Dosage: daily dose: 30-40 IE je nach BZ
  12. LEVEMIR [Concomitant]
     Dosage: daily dose: 40 IE LZ
  13. ASS [Concomitant]
     Dosage: 100 mg

REACTIONS (8)
  - Haematochezia [Recovered/Resolved]
  - Upper gastrointestinal haemorrhage [Recovered/Resolved]
  - Haematochezia [Recovered/Resolved]
  - Upper gastrointestinal haemorrhage [Recovered/Resolved]
  - Blood urine present [Not Recovered/Not Resolved]
  - Tumour marker increased [Not Recovered/Not Resolved]
  - Decreased appetite [Not Recovered/Not Resolved]
  - Weight decreased [Not Recovered/Not Resolved]
